FAERS Safety Report 8793297 (Version 2)
Quarter: 2012Q4

REPORT INFORMATION
  Report Type: 
  Country: US (occurrence: US)
  Receive Date: 20120918
  Receipt Date: 20121015
  Transmission Date: 20130627
  Serious: Yes (Death, Hospitalization)
  Sender: FDA-Public Use
  Company Number: US-ROCHE-1126222

PATIENT
  Age: 62 Year
  Sex: Female

DRUGS (3)
  1. AVASTIN [Suspect]
     Indication: OVARIAN CANCER
     Route: 042
     Dates: start: 20061020
  2. AVASTIN [Suspect]
     Indication: LUNG NEOPLASM MALIGNANT
  3. AVASTIN [Suspect]
     Indication: MALIGNANT NEOPLASM OF UTERINE ADNEXA

REACTIONS (4)
  - Ovarian cancer [Fatal]
  - Abdominal pain [Unknown]
  - Vaginal discharge [Unknown]
  - Fistula [Unknown]
